FAERS Safety Report 5641766-2 (Version None)
Quarter: 2008Q1

REPORT INFORMATION
  Report Type: 
  Country: None (occurrence: None)
  Receive Date: 20080131
  Receipt Date: 20071031
  Transmission Date: 20080703
  Serious: No
  Sender: FDA-Public Use
  Company Number: PHEH2007US14382

PATIENT
  Age: 68 Year
  Sex: Male

DRUGS (1)
  1. TEKTURNA [Suspect]
     Dosage: 300 MG, QD, ORAL
     Route: 048
     Dates: start: 20070913

REACTIONS (1)
  - URTICARIA [None]
